APPROVED DRUG PRODUCT: DOLISHALE
Active Ingredient: ETHINYL ESTRADIOL; LEVONORGESTREL
Strength: 0.02MG;0.09MG
Dosage Form/Route: TABLET;ORAL
Application: A091692 | Product #001 | TE Code: AB
Applicant: NOVAST LABORATORIES LTD
Approved: Oct 22, 2020 | RLD: No | RS: No | Type: RX